FAERS Safety Report 11665212 (Version 1)
Quarter: 2015Q4

REPORT INFORMATION
  Report Type: Report from Study
  Country: US (occurrence: US)
  Receive Date: 20151027
  Receipt Date: 20151027
  Transmission Date: 20160304
  Serious: No
  Sender: FDA-Public Use
  Company Number: US-SA-2014SA161504

PATIENT
  Age: 69 Year
  Sex: Female

DRUGS (1)
  1. KYNAMRO [Suspect]
     Active Substance: MIPOMERSEN SODIUM
     Indication: TYPE IIA HYPERLIPIDAEMIA
     Route: 058
     Dates: start: 20140204, end: 201508

REACTIONS (9)
  - Hepatic enzyme increased [Recovering/Resolving]
  - Abdominal pain [Recovering/Resolving]
  - Drug dose omission [Unknown]
  - Nausea [Recovering/Resolving]
  - Product quality issue [Recovered/Resolved]
  - Needle issue [Recovered/Resolved]
  - Blood glucose decreased [Recovering/Resolving]
  - Malaise [Recovered/Resolved]
  - Injection site rash [Recovered/Resolved]

NARRATIVE: CASE EVENT DATE: 2014
